FAERS Safety Report 8934332 (Version 1)
Quarter: 2012Q4

REPORT INFORMATION
  Report Type: 
  Country: US (occurrence: US)
  Receive Date: 20121129
  Receipt Date: 20121129
  Transmission Date: 20130627
  Serious: Yes (Other)
  Sender: FDA-Public Use
  Company Number: US-MYLANLABS-2012S1024071

PATIENT
  Age: 60 Year
  Sex: Male
  Weight: 79.38 kg

DRUGS (2)
  1. ATENOLOL TABLETS, USP [Suspect]
     Indication: BLOOD PRESSURE INCREASED
     Route: 048
  2. GABAPENTIN [Concomitant]
     Indication: INSOMNIA
     Route: 048
     Dates: start: 2002, end: 2012

REACTIONS (1)
  - Urticaria [Recovered/Resolved]
